FAERS Safety Report 10051031 (Version 3)
Quarter: 2014Q2

REPORT INFORMATION
  Report Type: Report from Study
  Country: JP (occurrence: JP)
  Receive Date: 20140401
  Receipt Date: 20140618
  Transmission Date: 20141212
  Serious: Yes (Hospitalization)
  Sender: FDA-Public Use
  Company Number: JP-BRISTOL-MYERS SQUIBB COMPANY-20580973

PATIENT
  Age: 73 Year
  Sex: Male
  Weight: 58.9 kg

DRUGS (5)
  1. ORENCIA FOR INJ 250 MG/VIAL [Suspect]
     Indication: RHEUMATOID ARTHRITIS
     Dosage: LAST DOSE ADMN:27-MAR-2013
     Route: 042
     Dates: start: 20120924, end: 20130327
  2. PREDNISOLONE [Suspect]
     Indication: RHEUMATOID ARTHRITIS
     Dosage: 12.5MG:24SEP-20NOV12?10MG:21NOV12-18DEC12?9MG:19DEC-12FEB13?8MG:13FEB-26MAR13?7MG:27MAR13 TO ONG
     Dates: start: 20120924
  3. BAKTAR [Concomitant]
     Dates: start: 2012, end: 201210
  4. SALAZOSULFAPYRIDINE [Concomitant]
  5. BUCILLAMINE [Concomitant]

REACTIONS (3)
  - Femur fracture [Unknown]
  - Lung neoplasm malignant [Unknown]
  - Fall [Unknown]
